FAERS Safety Report 17252066 (Version 1)
Quarter: 2019Q4

REPORT INFORMATION
  Report Type: Spontaneous
  Country: US (occurrence: US)
  Receive Date: 20191216
  Receipt Date: 20191216
  Transmission Date: 20200122
  Serious: No
  Sender: FDA-Public Use
  Company Number: None

PATIENT
  Age: 72 Year
  Sex: Male

DRUGS (1)
  1. TACROLIMUS CAP 0.5MG [Suspect]
     Active Substance: TACROLIMUS
     Indication: MYELODYSPLASTIC SYNDROME
     Dosage: ?          OTHER DOSE:1MG QAM AND 0.5 MG;?
     Route: 048

REACTIONS (2)
  - Stem cell transplant [None]
  - Off label use [None]

NARRATIVE: CASE EVENT DATE: 20191216
